FAERS Safety Report 7652089-4 (Version None)
Quarter: 2011Q3

REPORT INFORMATION
  Report Type: 
  Country: None (occurrence: None)
  Receive Date: 20110803
  Receipt Date: 20110726
  Transmission Date: 20111222
  Serious: Yes (Hospitalization)
  Sender: FDA-Public Use
  Company Number: FR-SP-2011-05615

PATIENT
  Sex: Male

DRUGS (1)
  1. IMMUCYST [Suspect]
     Indication: BLADDER CANCER
     Route: 043
     Dates: start: 20110616, end: 20110616

REACTIONS (3)
  - PYREXIA [None]
  - BOVINE TUBERCULOSIS [None]
  - HISTIOCYTOSIS HAEMATOPHAGIC [None]
